FAERS Safety Report 8998076 (Version 1)
Quarter: 2013Q1

REPORT INFORMATION
  Report Type: Spontaneous
  Country: GB (occurrence: GB)
  Receive Date: 20130104
  Receipt Date: 20130104
  Transmission Date: 20140127
  Serious: Yes (Other)
  Sender: FDA-Public Use
  Company Number: GB-BAUSCH-BL-2013-000021

PATIENT
  Age: 28 Year
  Sex: Female
  Weight: 69.85 kg

DRUGS (1)
  1. DEXAMETHASONE [Suspect]
     Indication: INFECTION
     Dates: start: 20121210, end: 20121211

REACTIONS (1)
  - Pain in extremity [Recovering/Resolving]
